FAERS Safety Report 7747119-5 (Version None)
Quarter: 2011Q3

REPORT INFORMATION
  Report Type: 
  Country: None (occurrence: None)
  Receive Date: 20110913
  Receipt Date: 20110902
  Transmission Date: 20111222
  Serious: Yes (Other)
  Sender: FDA-Public Use
  Company Number: US-PFIZER INC-2004040186

PATIENT
  Sex: Female
  Weight: 71.21 kg

DRUGS (5)
  1. PROCARDIA XL [Suspect]
     Indication: ANGINA PECTORIS
     Dosage: 30 MG DAILY
     Route: 048
  2. NEURONTIN [Suspect]
     Dosage: 300 MG IN THE MORNING, 300 MG AT NOON, AND 600 MG AT NIGHT
     Route: 048
  3. NEURONTIN [Suspect]
     Indication: PAIN
     Dosage: 300 MG, 2X/DAY
     Route: 048
     Dates: start: 20030101
  4. CELEBREX [Suspect]
     Indication: ARTHRITIS
     Dosage: 200 MG DAILY
  5. NEURONTIN [Suspect]
     Dosage: 300 MG IN THE MORNING AND 400 MG IN THE EVENING
     Route: 048

REACTIONS (5)
  - DYSGRAPHIA [None]
  - HYPOAESTHESIA [None]
  - GAIT DISTURBANCE [None]
  - PAIN [None]
  - SPINAL CORD DISORDER [None]
